FAERS Safety Report 9513550 (Version 1)
Quarter: 2013Q1

REPORT INFORMATION
  Report Type: Spontaneous
  Country: US (occurrence: None)
  Receive Date: 20130305
  Receipt Date: 20130305
  Transmission Date: 20140127
  Serious: Yes (Hospitalization)
  Sender: FDA-Public Use
  Company Number: 163-21880-12102046

PATIENT
  Sex: Female

DRUGS (5)
  1. REVLIMID (LENALIDOMIDE) (2.5 MILLIGRAM, CAPSULES) [Suspect]
     Indication: MYELODYSPLASTIC SYNDROME
     Route: 048
     Dates: start: 20120830
  2. AMBIEN [Concomitant]
  3. LEVOTHYROXINE SODIUM [Concomitant]
  4. LEXAPRO [Concomitant]
  5. COREG [Concomitant]

REACTIONS (2)
  - Pulmonary oedema [None]
  - Anaemia [None]
